FAERS Safety Report 15946106 (Version 3)
Quarter: 2019Q1

REPORT INFORMATION
  Report Type: Report from Study
  Country: US (occurrence: US)
  Receive Date: 20190211
  Receipt Date: 20190327
  Transmission Date: 20190417
  Serious: Yes (Other)
  Sender: FDA-Public Use
  Company Number: US-BRISTOL-MYERS SQUIBB COMPANY-BMS-2018-085395

PATIENT
  Age: 66 Year
  Sex: Female

DRUGS (3)
  1. NIVOLUMAB [Suspect]
     Active Substance: NIVOLUMAB
     Indication: PRODUCT USED FOR UNKNOWN INDICATION
     Dosage: UNK, Q4WK
     Route: 042
     Dates: start: 20180601
  2. VITAMIN B12 [Concomitant]
     Active Substance: CYANOCOBALAMIN
     Indication: PRODUCT USED FOR UNKNOWN INDICATION
     Dosage: UNK
     Route: 065
  3. LEVOTHYROXINE. [Concomitant]
     Active Substance: LEVOTHYROXINE
     Indication: PRODUCT USED FOR UNKNOWN INDICATION
     Dosage: 112 ?G, QD
     Route: 065

REACTIONS (23)
  - Thyroid mass [Unknown]
  - Dizziness [Unknown]
  - Dry skin [Unknown]
  - Myalgia [Unknown]
  - Bone pain [Unknown]
  - Fatigue [Unknown]
  - Pruritus [Unknown]
  - Nausea [Not Recovered/Not Resolved]
  - Pollakiuria [Unknown]
  - Cough [Unknown]
  - Weight increased [Unknown]
  - Headache [Unknown]
  - Somnolence [Recovering/Resolving]
  - Back pain [Unknown]
  - Muscle spasms [Unknown]
  - Muscle strain [Unknown]
  - Dysuria [Unknown]
  - Pain in extremity [Not Recovered/Not Resolved]
  - Nephrolithiasis [Unknown]
  - Renal disorder [Unknown]
  - Increased appetite [Unknown]
  - Arthralgia [Unknown]
  - Diarrhoea [Unknown]

NARRATIVE: CASE EVENT DATE: 20190115
